FAERS Safety Report 9424324 (Version 1)
Quarter: 2013Q3

REPORT INFORMATION
  Report Type: Spontaneous
  Country: JP (occurrence: JP)
  Receive Date: 20130729
  Receipt Date: 20130729
  Transmission Date: 20140515
  Serious: Yes (Death, Hospitalization)
  Sender: FDA-Public Use
  Company Number: JP-MYLANLABS-2013S1015810

PATIENT
  Age: 72 Year
  Sex: Male

DRUGS (4)
  1. PACLITAXEL [Suspect]
     Indication: METASTATIC GASTRIC CANCER
     Dosage: 17 COURSES
     Route: 065
  2. TEYSUNO [Suspect]
     Indication: METASTATIC GASTRIC CANCER
     Dosage: 17 COURSES
     Route: 065
  3. DOCETAXEL [Suspect]
     Indication: METASTATIC GASTRIC CANCER
     Dosage: 95MG
     Route: 041
  4. METHYLPREDNISOLONE [Concomitant]
     Dosage: 8MG, BEFORE DOCETAXEL ADMINISTRATION
     Route: 065

REACTIONS (3)
  - Liver abscess [Fatal]
  - Escherichia sepsis [Fatal]
  - Multi-organ failure [Fatal]
